FAERS Safety Report 8018110-9 (Version None)
Quarter: 2012Q1

REPORT INFORMATION
  Report Type: 
  Country: None (occurrence: None)
  Receive Date: 20120103
  Receipt Date: 20111222
  Transmission Date: 20120608
  Serious: Yes (Hospitalization)
  Sender: FDA-Public Use
  Company Number: DE-ELI_LILLY_AND_COMPANY-DE201112006257

PATIENT
  Age: 81 Year
  Sex: Female

DRUGS (4)
  1. FORTEO [Suspect]
     Indication: OSTEOPOROSIS POSTMENOPAUSAL
     Dosage: 20 UG, UNK
     Dates: start: 20110901
  2. TILIDIN [Concomitant]
  3. MORPHINE SULFATE [Concomitant]
  4. NALOXONE [Concomitant]

REACTIONS (1)
  - GASTROINTESTINAL HYPOMOTILITY [None]
